FAERS Safety Report 4833660-1 (Version None)
Quarter: 2005Q4

REPORT INFORMATION
  Report Type: 
  Country: None (occurrence: None)
  Receive Date: 20051116
  Receipt Date: 20051031
  Transmission Date: 20060501
  Serious: Yes (Other)
  Sender: FDA-Public Use
  Company Number: 2005148658

PATIENT
  Age: 7 Year
  Sex: Male
  Weight: 24.9478 kg

DRUGS (1)
  1. DRAMAMINE LESS DROWSY FORMULA (MECLIZINE) [Suspect]
     Indication: MOTION SICKNESS
     Dosage: 1 TAB TWICE, ORAL
     Route: 048
     Dates: start: 20051031

REACTIONS (2)
  - PHARYNGEAL HYPOAESTHESIA [None]
  - VOMITING [None]
